FAERS Safety Report 9859114 (Version 2)
Quarter: 2014Q1

REPORT INFORMATION
  Report Type: Report from Study
  Country: US (occurrence: US)
  Receive Date: 20140131
  Receipt Date: 20140131
  Transmission Date: 20141002
  Serious: Yes (Other)
  Sender: FDA-Public Use
  Company Number: US-JNJFOC-20130808523

PATIENT
  Age: 70 Year
  Sex: Female
  Weight: 91.36 kg

DRUGS (24)
  1. XARELTO [Suspect]
     Indication: DEEP VEIN THROMBOSIS
     Route: 048
     Dates: start: 20130806, end: 20130906
  2. XARELTO [Suspect]
     Indication: DEEP VEIN THROMBOSIS
     Route: 048
  3. ASPIRIN [Suspect]
     Indication: ANTIPLATELET THERAPY
     Route: 065
  4. LEVOTHYROXINE [Concomitant]
     Indication: HYPOTHYROIDISM
     Route: 048
     Dates: start: 20130729
  5. ALLEGRA [Concomitant]
     Indication: ALLERGY PROPHYLAXIS
     Route: 048
     Dates: start: 20120826
  6. CARVEDIOL [Concomitant]
     Indication: HYPERTENSION
     Dosage: 1/2 TABLET
     Route: 048
     Dates: start: 20120930
  7. LASIX [Concomitant]
     Indication: OEDEMA
     Route: 048
     Dates: start: 20120826
  8. LIVALO [Concomitant]
     Indication: BLOOD CHOLESTEROL ABNORMAL
     Route: 048
     Dates: start: 20120826
  9. PROTONIX [Concomitant]
     Indication: GASTROOESOPHAGEAL REFLUX DISEASE
     Route: 048
     Dates: start: 2012
  10. PERCOCET [Concomitant]
     Indication: PAIN
     Route: 048
     Dates: start: 20121031
  11. PERCOCET [Concomitant]
     Indication: PAIN
     Dosage: 10/325MG ONE TO TWO PER DAY AS NEEDED
     Route: 048
     Dates: start: 2008
  12. ADVAIR DISKUS 500/50 [Concomitant]
     Dosage: 500-50 MCG DOSE INHALE ONE DOSE BY MOUTH TWICE DAILY
     Route: 055
     Dates: start: 20121021
  13. ALPRAZOLAM [Concomitant]
     Indication: ANXIETY
     Dosage: ONE TABLET EVERY 12 HOURS AS NEEDED
     Route: 048
     Dates: start: 20121115
  14. ONDANSETRON [Concomitant]
     Indication: NAUSEA
     Dosage: 1 TABLET EVERY 8 HOURS
     Route: 048
     Dates: start: 20130610
  15. VALACYCLOVIR [Concomitant]
     Route: 048
  16. VITAMIN D [Concomitant]
     Dosage: 1000 UNIT
     Route: 048
  17. BUPAP [Concomitant]
     Dosage: 50-300 MG
     Route: 048
     Dates: start: 20131227
  18. FEXOFENADINE HCL [Concomitant]
     Route: 048
     Dates: start: 20120826
  19. FUROSEMIDE [Concomitant]
     Route: 048
     Dates: start: 20120826
  20. MECLIZINE HCL [Concomitant]
     Route: 048
     Dates: start: 20121021
  21. METHOCARBAMOL [Concomitant]
     Indication: DIZZINESS
     Route: 048
     Dates: start: 20121021
  22. NEXIUM [Concomitant]
     Route: 048
     Dates: start: 20130926
  23. OXYCODONE-ACETAMINOPHEN [Concomitant]
     Indication: PAIN
     Dosage: 10-325 MG, PO EVERY 4-6 HOURS
     Route: 048
  24. PROMETHAZINE HCL [Concomitant]
     Indication: NAUSEA
     Dosage: 1-2 TABLETS BY MOUTH EVERY 6 HOURS AS NEEDED
     Route: 048

REACTIONS (16)
  - Haematemesis [Recovered/Resolved]
  - Renal function test abnormal [Unknown]
  - Red blood cell count decreased [Unknown]
  - Asthenia [Not Recovered/Not Resolved]
  - Feeling abnormal [Not Recovered/Not Resolved]
  - Retching [Recovered/Resolved]
  - Malaise [Not Recovered/Not Resolved]
  - Dizziness [Not Recovered/Not Resolved]
  - Lacrimation increased [Not Recovered/Not Resolved]
  - Eye disorder [Not Recovered/Not Resolved]
  - Abdominal discomfort [Not Recovered/Not Resolved]
  - Nausea [Not Recovered/Not Resolved]
  - Influenza like illness [Not Recovered/Not Resolved]
  - Abdominal pain [Not Recovered/Not Resolved]
  - Facial pain [Not Recovered/Not Resolved]
  - Eye pain [Not Recovered/Not Resolved]
